FAERS Safety Report 6204572-6 (Version None)
Quarter: 2009Q2

REPORT INFORMATION
  Report Type: 
  Country: None (occurrence: None)
  Receive Date: 20090527
  Receipt Date: 20090514
  Transmission Date: 20091009
  Serious: Yes (Hospitalization)
  Sender: FDA-Public Use
  Company Number: US-PFIZER INC-2009212841

PATIENT
  Sex: Female
  Weight: 58.2 kg

DRUGS (11)
  1. SUTENT [Suspect]
     Indication: BREAST CANCER
     Dosage: UNK
  2. ADRIAMYCIN RDF [Suspect]
     Indication: BREAST CANCER
     Dosage: 97.8 MG, UNK
     Route: 042
     Dates: start: 20090507
  3. CYTOXAN [Suspect]
     Indication: BREAST CANCER
     Dosage: 978 MG, UNK
     Route: 042
     Dates: start: 20090507
  4. TAXOL [Suspect]
     Indication: BREAST CANCER
  5. HYDROCODONE [Concomitant]
     Dosage: UNK
     Dates: start: 20081015
  6. PROTONIX [Concomitant]
     Dosage: UNK
     Dates: start: 20080615
  7. PROMETHAZINE HYDROCHLORIDE [Concomitant]
     Dosage: UNK
     Dates: start: 20080915
  8. LISINOPRIL [Concomitant]
     Dosage: UNK
     Dates: start: 20090108
  9. PRILOSEC [Concomitant]
     Dosage: UNK
     Dates: start: 20090114
  10. ZESTORETIC [Concomitant]
     Dosage: UNK
     Dates: start: 20090206
  11. TRAZODONE [Concomitant]
     Dosage: UNK
     Dates: start: 20090204

REACTIONS (3)
  - DEHYDRATION [None]
  - FEBRILE NEUTROPENIA [None]
  - TACHYCARDIA [None]
